FAERS Safety Report 7610261-3 (Version None)
Quarter: 2011Q3

REPORT INFORMATION
  Report Type: 
  Country: None (occurrence: None)
  Receive Date: 20110706
  Receipt Date: 20110617
  Transmission Date: 20111222
  Serious: Yes (Hospitalization)
  Sender: FDA-Public Use
  Company Number: 1000021937

PATIENT
  Age: 25 Year
  Sex: Female

DRUGS (1)
  1. ESCITALOPRAM [Suspect]
     Indication: PRODUCT USED FOR UNKNOWN INDICATION
     Dosage: 10 MG (10 MG,1 IN 1 D),ORAL
     Route: 048
     Dates: start: 20110202, end: 20110502

REACTIONS (6)
  - HEADACHE [None]
  - MUSCULAR WEAKNESS [None]
  - VERTIGO [None]
  - ARTHRALGIA [None]
  - HEMIPARESIS [None]
  - PAIN IN EXTREMITY [None]
